FAERS Safety Report 19114957 (Version 1)
Quarter: 2021Q2

REPORT INFORMATION
  Report Type: Spontaneous
  Country: US (occurrence: US)
  Receive Date: 20210408
  Receipt Date: 20210408
  Transmission Date: 20210717
  Serious: No
  Sender: FDA-Public Use
  Company Number: US-SA-2021SA115316

PATIENT
  Sex: Female

DRUGS (10)
  1. CALCIUM MAGNESIUM [CALCIUM;MAGNESIUM] [Concomitant]
  2. PRENATAL DHA [Concomitant]
     Active Substance: DOCONEXENT\MINERALS\VITAMINS
  3. DUPIXENT [Suspect]
     Active Substance: DUPILUMAB
     Indication: DERMATITIS ATOPIC
     Dosage: 300 MG, QOW
     Route: 058
     Dates: start: 20210329
  4. ALPHA LIPOIC ACID [Concomitant]
     Active Substance: .ALPHA.-LIPOIC ACID
  5. CLARITIN [Concomitant]
     Active Substance: LORATADINE
  6. SINGULAIR [Concomitant]
     Active Substance: MONTELUKAST SODIUM
  7. ZYRTEC [Concomitant]
     Active Substance: CETIRIZINE HYDROCHLORIDE
  8. QUERCETIN [Concomitant]
     Active Substance: QUERCETIN
  9. BIOTIN [Concomitant]
     Active Substance: BIOTIN
  10. OMEGA 3 6 9 [FISH OIL] [Concomitant]

REACTIONS (4)
  - Anxiety [Unknown]
  - Skin disorder [Unknown]
  - Alopecia [Unknown]
  - Cardiovascular symptom [Unknown]
